FAERS Safety Report 5203405-4 (Version None)
Quarter: 2007Q1

REPORT INFORMATION
  Report Type: 
  Country: None (occurrence: None)
  Receive Date: 20070105
  Receipt Date: 20061222
  Transmission Date: 20070707
  Serious: Yes (Congenital Anomaly)
  Sender: FDA-Public Use
  Company Number: 2006AL003754

PATIENT

DRUGS (4)
  1. TRAMADOL HCL [Suspect]
     Dosage: TRPL
     Route: 064
  2. CO-CODAMOL [Concomitant]
  3. IMIPRAMINE [Concomitant]
  4. DIHYDROCODEINE/PARACETAMOL [Concomitant]

REACTIONS (2)
  - CONGENITAL MULTIPLEX ARTHROGRYPOSIS [None]
  - DRUG EXPOSURE DURING PREGNANCY [None]
